FAERS Safety Report 7945488-4 (Version None)
Quarter: 2011Q4

REPORT INFORMATION
  Report Type: 
  Country: None (occurrence: None)
  Receive Date: 20111121
  Receipt Date: 20111107
  Transmission Date: 20120403
  Serious: Yes (Hospitalization, Other)
  Sender: FDA-Public Use
  Company Number: 2011S1023089

PATIENT
  Age: 69 Year
  Sex: Female
  Weight: 68.0396 kg

DRUGS (8)
  1. LISINOPRIL [Concomitant]
  2. MEDROL [Concomitant]
  3. MELATONIN [Concomitant]
  4. NEXIUM [Concomitant]
  5. AMITRIPTYLINE HCL [Concomitant]
  6. LASIX [Concomitant]
  7. METHYLPREDNISOLONE [Concomitant]
  8. DIGOXIN [Suspect]
     Indication: CARDIAC DISORDER
     Dosage: ;DAILY;
     Dates: end: 20080401

REACTIONS (14)
  - CARDIOMYOPATHY [None]
  - CONTUSION [None]
  - TOXICITY TO VARIOUS AGENTS [None]
  - NAUSEA [None]
  - VOMITING [None]
  - CONDITION AGGRAVATED [None]
  - RENAL FAILURE ACUTE [None]
  - DIZZINESS [None]
  - DIABETES MELLITUS [None]
  - APHAGIA [None]
  - BLOOD TRIGLYCERIDES INCREASED [None]
  - EJECTION FRACTION DECREASED [None]
  - BUNDLE BRANCH BLOCK LEFT [None]
  - DEHYDRATION [None]
